FAERS Safety Report 7178892-5 (Version None)
Quarter: 2010Q4

REPORT INFORMATION
  Report Type: 
  Country: None (occurrence: None)
  Receive Date: 20101217
  Receipt Date: 20101217
  Transmission Date: 20110411
  Serious: Yes (Hospitalization)
  Sender: FDA-Public Use
  Company Number: None

PATIENT
  Age: 36 Year
  Sex: Male
  Weight: 77.1115 kg

DRUGS (1)
  1. ROLAIDS SOFT CHEWS EXTRA STRENGTH MCNEIL CONSUMER  HEALTHCARE [Suspect]
     Indication: DYSPEPSIA
     Dosage: 1 PO
     Route: 048
     Dates: start: 20101120, end: 20101202

REACTIONS (2)
  - ABDOMINAL PAIN UPPER [None]
  - PRODUCT QUALITY ISSUE [None]
